FAERS Safety Report 6182746-0 (Version None)
Quarter: 2009Q2

REPORT INFORMATION
  Report Type: 
  Country: None (occurrence: None)
  Receive Date: 20090507
  Receipt Date: 20090408
  Transmission Date: 20091009
  Serious: Yes (Life-Threatening)
  Sender: FDA-Public Use
  Company Number: US-ASTRAZENECA-2009UW08885

PATIENT
  Age: 43 Year
  Sex: Male

DRUGS (5)
  1. ROSUVASTATIN CALCIUM [Suspect]
     Indication: HYPERLIPIDAEMIA
     Route: 048
     Dates: start: 20070122, end: 20070221
  2. FENOFIBRATE [Suspect]
     Indication: HYPERLIPIDAEMIA
     Route: 048
     Dates: start: 20070122, end: 20070221
  3. LISINOPRIL [Concomitant]
     Route: 048
     Dates: start: 20030313
  4. AMLODIPINE [Concomitant]
     Route: 048
     Dates: start: 20030317
  5. GLIMEPIRIDE [Concomitant]
     Route: 048
     Dates: start: 20030317

REACTIONS (6)
  - DERMATITIS [None]
  - DRUG ERUPTION [None]
  - ERYTHEMA ANNULARE [None]
  - PAIN [None]
  - PIGMENTATION DISORDER [None]
  - PRURITUS [None]
